FAERS Safety Report 6107754-7 (Version None)
Quarter: 2009Q1

REPORT INFORMATION
  Report Type: 
  Country: None (occurrence: None)
  Receive Date: 20090309
  Receipt Date: 20090306
  Transmission Date: 20090719
  Serious: Yes (Hospitalization, Other)
  Sender: FDA-Public Use
  Company Number: A0772123A

PATIENT
  Age: 38 Year
  Sex: Female
  Weight: 63.1 kg

DRUGS (11)
  1. MELPHALAN [Suspect]
     Indication: AMYLOIDOSIS
     Dates: start: 20070918, end: 20070919
  2. VELCADE [Suspect]
     Indication: AMYLOIDOSIS
     Dosage: 1.3MGM2 VARIABLE DOSE
     Dates: start: 20071207
  3. DEXAMETHASONE [Suspect]
     Indication: AMYLOIDOSIS
     Dates: start: 20071207
  4. FLUCONAZOLE [Concomitant]
  5. PYRIDOXINE [Concomitant]
  6. ACYCLOVIR [Concomitant]
  7. OMEPRAZOLE [Concomitant]
  8. METOPROLOL [Concomitant]
  9. TORSEMIDE [Concomitant]
  10. INSPRA [Concomitant]
  11. WARFARIN SODIUM [Concomitant]

REACTIONS (6)
  - ABDOMINAL DISCOMFORT [None]
  - CHEST DISCOMFORT [None]
  - HAEMOPTYSIS [None]
  - MUSCLE TIGHTNESS [None]
  - RESPIRATORY TRACT HAEMORRHAGE [None]
  - THROMBOCYTOPENIA [None]
